FAERS Safety Report 7930248-0 (Version None)
Quarter: 2011Q4

REPORT INFORMATION
  Report Type: 
  Country: None (occurrence: None)
  Receive Date: 20111121
  Receipt Date: 20110814
  Transmission Date: 20120403
  Serious: No
  Sender: FDA-Public Use
  Company Number: US-BAYER-2011-101483

PATIENT
  Age: 57 Year
  Sex: Male
  Weight: 86 kg

DRUGS (2)
  1. ALEVE (CAPLET) [Suspect]
     Indication: GALLBLADDER OPERATION
     Dosage: 2 DF, PRN
     Dates: start: 20110810
  2. METFORMIN HCL [Concomitant]

REACTIONS (1)
  - NO ADVERSE EVENT [None]
